FAERS Safety Report 15404106 (Version 1)
Quarter: 2018Q3

REPORT INFORMATION
  Report Type: Spontaneous
  Country: US (occurrence: US)
  Receive Date: 20180919
  Receipt Date: 20180919
  Transmission Date: 20181010
  Serious: No
  Sender: FDA-Public Use
  Company Number: US-AVADEL SPECIALTY PHARMACEUTICALS, LLC-2018AVA00311

PATIENT
  Sex: Male

DRUGS (1)
  1. NOCTIVA [Suspect]
     Active Substance: DESMOPRESSIN ACETATE
     Indication: NOCTURIA
     Dosage: SPRAY INTO ONE NOSTRIL 30 MINUTES BEFORE BEDTIME
     Route: 045

REACTIONS (3)
  - Rhinorrhoea [Unknown]
  - Nasal discomfort [Unknown]
  - Drug ineffective [Unknown]
